FAERS Safety Report 7741034-9 (Version None)
Quarter: 2011Q3

REPORT INFORMATION
  Report Type: 
  Country: None (occurrence: None)
  Receive Date: 20110909
  Receipt Date: 20110829
  Transmission Date: 20111222
  Serious: Yes (Other)
  Sender: FDA-Public Use
  Company Number: US-BAYER-2011-021216

PATIENT
  Age: 21 Year
  Sex: Female
  Weight: 125 kg

DRUGS (12)
  1. YAZ [Suspect]
     Indication: ACNE
     Dosage: UNK
     Dates: start: 20060101, end: 20090101
  2. AMERGE [Concomitant]
     Dosage: 10 MG, PRN
     Route: 048
  3. YASMIN [Suspect]
     Indication: CONTRACEPTION
  4. LITHIUM CARBONATE [Concomitant]
     Dosage: 300 MG, BID
     Route: 048
  5. YAZ [Suspect]
     Indication: CONTRACEPTION
  6. ALLEGRA [Concomitant]
     Dosage: 180 MG, QD
     Route: 048
  7. PROPRANOLOL [Concomitant]
     Dosage: 40 MG, QD
     Route: 048
  8. YASMIN [Suspect]
     Indication: ACNE
     Dosage: UNK
     Dates: start: 20060101, end: 20090101
  9. AMBIEN [Concomitant]
     Dosage: 10 MG, HS
     Route: 048
  10. DROSPIRENONE AND ETHINYL ESTRADIOL [Suspect]
     Indication: CONTRACEPTION
     Dosage: UNK
     Dates: start: 20060101, end: 20090101
  11. RANITIDINE [Concomitant]
     Dosage: 150 MG, QD
     Route: 048
  12. ABILIFY [Concomitant]
     Dosage: ORAL150 MG, QD
     Route: 048

REACTIONS (5)
  - CHOLELITHIASIS [None]
  - PAIN [None]
  - CHOLECYSTITIS CHRONIC [None]
  - INJURY [None]
  - GALLBLADDER DISORDER [None]
